FAERS Safety Report 20709435 (Version 10)
Quarter: 2023Q4

REPORT INFORMATION
  Report Type: Report from Study
  Country: ZA (occurrence: ZA)
  Receive Date: 20220414
  Receipt Date: 20231218
  Transmission Date: 20240109
  Serious: Yes (Other)
  Sender: FDA-Public Use
  Company Number: ZA-TAKEDA-2022TUS024504

PATIENT
  Age: 76 Year
  Sex: Female

DRUGS (1)
  1. VEDOLIZUMAB [Suspect]
     Active Substance: VEDOLIZUMAB
     Indication: Colitis ulcerative
     Dosage: 300 MILLIGRAM
     Route: 042
     Dates: start: 2019

REACTIONS (9)
  - Colitis ulcerative [Unknown]
  - Osteomyelitis [Not Recovered/Not Resolved]
  - Myalgia [Not Recovered/Not Resolved]
  - COVID-19 [Unknown]
  - Tooth loss [Not Recovered/Not Resolved]
  - Post procedural complication [Recovering/Resolving]
  - Tooth abscess [Not Recovered/Not Resolved]
  - Tooth infection [Recovered/Resolved]
  - Inappropriate schedule of product administration [Recovered/Resolved]
